FAERS Safety Report 21446131 (Version 1)
Quarter: 2022Q4

REPORT INFORMATION
  Report Type: Spontaneous
  Country: DE (occurrence: DE)
  Receive Date: 20221012
  Receipt Date: 20221012
  Transmission Date: 20230112
  Serious: Yes (Death, Hospitalization, Other)
  Sender: FDA-Public Use
  Company Number: DE-ANIPHARMA-2022-DE-000182

PATIENT
  Age: 74 Year
  Sex: Male
  Weight: 92 kg

DRUGS (7)
  1. CANDESARTAN CILEXETIL [Suspect]
     Active Substance: CANDESARTAN CILEXETIL
     Indication: Product used for unknown indication
     Dosage: 8 MG QD
     Route: 048
  2. FEBUXOSTAT [Suspect]
     Active Substance: FEBUXOSTAT
     Dosage: 80 MG QD
     Route: 048
  3. METFORMIN [Suspect]
     Active Substance: METFORMIN HYDROCHLORIDE
     Dosage: 500 MG QD
     Route: 048
  4. TORSEMIDE [Suspect]
     Active Substance: TORSEMIDE
     Dosage: 50 MG QD
     Route: 048
  5. CLOPIDOGREL [Suspect]
     Active Substance: CLOPIDOGREL BISULFATE
     Dosage: 75 MG QD
     Route: 048
  6. BISOPROLOL [Suspect]
     Active Substance: BISOPROLOL
     Dosage: 2.5 MG BID
     Route: 048
  7. APIXABAN [Suspect]
     Active Substance: APIXABAN
     Dosage: 2.5 MG BID
     Route: 048

REACTIONS (11)
  - Acute kidney injury [Unknown]
  - Lower gastrointestinal haemorrhage [Unknown]
  - Product prescribing error [Unknown]
  - Respiratory tract haemorrhage [Unknown]
  - Anaemia [Unknown]
  - Haematochezia [Unknown]
  - Constipation [Unknown]
  - Death [Fatal]
  - Hypokalaemia [Unknown]
  - Paraesthesia [Unknown]
  - Oedema peripheral [Unknown]
